FAERS Safety Report 25780780 (Version 2)
Quarter: 2025Q3

REPORT INFORMATION
  Report Type: Spontaneous
  Country: TR (occurrence: TR)
  Receive Date: 20250909
  Receipt Date: 20250912
  Transmission Date: 20251021
  Serious: Yes (Hospitalization)
  Sender: VERTEX
  Company Number: TR-VERTEX PHARMACEUTICALS-2025-014601

PATIENT
  Age: 9 Year
  Sex: Female
  Weight: 27 kg

DRUGS (4)
  1. IVACAFTOR [Suspect]
     Active Substance: IVACAFTOR
     Indication: Cystic fibrosis
     Dosage: 150 MG, BID
     Route: 048
  2. IVACAFTOR [Suspect]
     Active Substance: IVACAFTOR
     Route: 048
  3. IVACAFTOR [Suspect]
     Active Substance: IVACAFTOR
     Route: 048
  4. DORNASE ALFA [Concomitant]
     Active Substance: DORNASE ALFA

REACTIONS (1)
  - Type IV hypersensitivity reaction [Recovered/Resolved]
